FAERS Safety Report 21229869 (Version 3)
Quarter: 2022Q4

REPORT INFORMATION
  Report Type: Report from Study
  Country: IT (occurrence: IT)
  Receive Date: 20220818
  Receipt Date: 20221216
  Transmission Date: 20230112
  Serious: Yes (Hospitalization)
  Sender: FDA-Public Use
  Company Number: IT-PFIZER INC-PV202200043406

PATIENT
  Age: 34 Year
  Sex: Female
  Weight: 49 kg

DRUGS (1)
  1. CYTOTEC [Suspect]
     Active Substance: MISOPROSTOL
     Dosage: 200 UG, 3X/DAY
     Dates: start: 20190514, end: 20190515

REACTIONS (1)
  - Post abortion haemorrhage [Recovered/Resolved]

NARRATIVE: CASE EVENT DATE: 20190514
